FAERS Safety Report 23973142 (Version 1)
Quarter: 2024Q2

REPORT INFORMATION
  Report Type: Spontaneous
  Country: US (occurrence: US)
  Receive Date: 20240613
  Receipt Date: 20240613
  Transmission Date: 20240716
  Serious: No
  Sender: FDA-Public Use
  Company Number: None

PATIENT
  Age: 64 Year
  Sex: Male

DRUGS (11)
  1. FLUCONAZOLE [Suspect]
     Active Substance: FLUCONAZOLE
     Indication: Evidence based treatment
     Dosage: EVERY OTHER DAY
  2. CEFEPIME [Suspect]
     Active Substance: CEFEPIME HYDROCHLORIDE
     Indication: Antibiotic therapy
  3. AZITHROMYCIN [Suspect]
     Active Substance: AZITHROMYCIN
     Indication: Antibiotic therapy
  4. RUXOLITINIB [Concomitant]
     Active Substance: RUXOLITINIB
     Indication: Polycythaemia vera
     Dosage: REDUCED DOSE GIVEN CONCURRENT USE OF FLUCONAZOLE
  5. RUXOLITINIB [Concomitant]
     Active Substance: RUXOLITINIB
  6. CYTARABINE [Concomitant]
     Active Substance: CYTARABINE
     Indication: Acute myeloid leukaemia
     Route: 042
  7. OXYGEN [Concomitant]
     Active Substance: OXYGEN
     Indication: Oxygen therapy
     Dosage: VIA NON-REBREATHER MASK
  8. OXYGEN [Concomitant]
     Active Substance: OXYGEN
     Dosage: 2 TO 3L VIA NASAL CANNULA
     Route: 045
  9. PREDNISONE [Concomitant]
     Active Substance: PREDNISONE
     Indication: Product used for unknown indication
     Dosage: EXTENDED PREDNISONE TAPER
  10. ACYCLOVIR [Concomitant]
     Active Substance: ACYCLOVIR
     Indication: Antiviral treatment
  11. METHYLPREDNISOLONE [Concomitant]
     Active Substance: METHYLPREDNISOLONE
     Indication: Respiratory failure

REACTIONS (1)
  - Hepatic function abnormal [Unknown]
